FAERS Safety Report 4814792-0 (Version None)
Quarter: 2005Q4

REPORT INFORMATION
  Report Type: 
  Country: None (occurrence: None)
  Receive Date: 20051028
  Receipt Date: 20041229
  Transmission Date: 20060501
  Serious: No
  Sender: FDA-Public Use
  Company Number: US-GLAXOSMITHKLINE-A0538824A

PATIENT
  Sex: Female

DRUGS (8)
  1. ADVAIR DISKUS 100/50 [Suspect]
     Indication: CHRONIC OBSTRUCTIVE PULMONARY DISEASE
     Dosage: 1PUFF PER DAY
     Route: 055
  2. DEPAKOTE [Concomitant]
  3. ZYPREXA [Concomitant]
  4. ALBUTEROL [Concomitant]
  5. COMBIVENT [Concomitant]
  6. PROZAC [Concomitant]
  7. LORATADINE [Concomitant]
  8. NASACORT [Concomitant]

REACTIONS (1)
  - DYSPNOEA [None]
